FAERS Safety Report 11877546 (Version 2)
Quarter: 2016Q2

REPORT INFORMATION
  Report Type: Report from Study
  Country: JP (occurrence: JP)
  Receive Date: 20151230
  Receipt Date: 20160624
  Transmission Date: 20160815
  Serious: Yes (Hospitalization, Other)
  Sender: FDA-Public Use
  Company Number: PHHY2011JP22100

PATIENT
  Age: 2 Year
  Sex: Male
  Weight: 9 kg

DRUGS (28)
  1. CERTICAN [Suspect]
     Active Substance: EVEROLIMUS
     Dosage: 0.5 MG, QD
     Route: 048
     Dates: start: 20080818
  2. CERTICAN [Suspect]
     Active Substance: EVEROLIMUS
     Dosage: 0.5 MG, UNK
     Route: 048
     Dates: start: 20130521, end: 20150803
  3. NEORAL [Suspect]
     Active Substance: CYCLOSPORINE
     Dosage: 120 MG, UNK
     Route: 048
     Dates: start: 20120131, end: 20120513
  4. NEORAL [Suspect]
     Active Substance: CYCLOSPORINE
     Dosage: 120 MG, UNK
     Route: 048
     Dates: start: 20130423, end: 20130527
  5. NEORAL [Suspect]
     Active Substance: CYCLOSPORINE
     Dosage: 90 MG, UNK
     Route: 048
     Dates: start: 20160517
  6. NEORAL [Suspect]
     Active Substance: CYCLOSPORINE
     Dosage: 95 MG, QD
     Route: 048
     Dates: start: 20090202, end: 20090712
  7. NEORAL [Suspect]
     Active Substance: CYCLOSPORINE
     Dosage: 105 MG, UNK
     Route: 065
     Dates: start: 20110509
  8. NEORAL [Suspect]
     Active Substance: CYCLOSPORINE
     Dosage: 105 MG, UNK
     Route: 048
     Dates: start: 20090713, end: 20110410
  9. NEORAL [Suspect]
     Active Substance: CYCLOSPORINE
     Dosage: UNK
     Route: 048
     Dates: start: 20111020
  10. NEORAL [Suspect]
     Active Substance: CYCLOSPORINE
     Dosage: 100 MG, UNK
     Route: 048
     Dates: start: 20140519, end: 20141019
  11. NEORAL [Suspect]
     Active Substance: CYCLOSPORINE
     Dosage: 100 MG, UNK
     Route: 048
     Dates: start: 20150915, end: 20160516
  12. NEORAL [Suspect]
     Active Substance: CYCLOSPORINE
     Dosage: 115 MG, UNK
     Route: 065
     Dates: start: 20110411
  13. NEORAL [Suspect]
     Active Substance: CYCLOSPORINE
     Dosage: 110 MG, UNK
     Route: 048
     Dates: start: 20141020, end: 20150914
  14. NEORAL [Suspect]
     Active Substance: CYCLOSPORINE
     Dosage: 110 MG, UNK
     Route: 048
     Dates: start: 20130528, end: 20140518
  15. MEVALOTIN [Concomitant]
     Active Substance: PRAVASTATIN SODIUM
     Indication: HYPERCHOLESTEROLAEMIA
     Dosage: 2 MG, UNK
     Route: 048
     Dates: start: 20091207, end: 20100131
  16. BAKTAR [Concomitant]
     Active Substance: SULFAMETHOXAZOLE\TRIMETHOPRIM
     Dosage: 0.5 G, UNK
     Route: 048
     Dates: start: 20130521
  17. CERTICAN [Suspect]
     Active Substance: EVEROLIMUS
     Indication: HEART TRANSPLANT
     Dosage: 0.5 MG, UNK
     Route: 048
     Dates: start: 20080521
  18. NEORAL [Suspect]
     Active Substance: CYCLOSPORINE
     Indication: PRODUCT USED FOR UNKNOWN INDICATION
     Dosage: 90 MG, UNK
     Route: 065
     Dates: start: 20080521, end: 20080525
  19. NEORAL [Suspect]
     Active Substance: CYCLOSPORINE
     Dosage: 95 MG, UNK
     Route: 065
     Dates: start: 20080526, end: 20080713
  20. NEORAL [Suspect]
     Active Substance: CYCLOSPORINE
     Dosage: 105 MG, QD
     Route: 048
     Dates: start: 20080818, end: 20081025
  21. BAKTAR [Concomitant]
     Active Substance: SULFAMETHOXAZOLE\TRIMETHOPRIM
     Indication: PROPHYLAXIS
     Dosage: 0.5 G, UNK
     Route: 048
     Dates: start: 20080818
  22. CERTICAN [Suspect]
     Active Substance: EVEROLIMUS
     Dosage: 0.75 MG, UNK
     Route: 048
     Dates: start: 20150804
  23. NEORAL [Suspect]
     Active Substance: CYCLOSPORINE
     Dosage: 115 MG, UNK
     Route: 065
     Dates: start: 20110803
  24. MEVALOTIN [Concomitant]
     Active Substance: PRAVASTATIN SODIUM
     Dosage: 3 MG, UNK
     Route: 048
     Dates: start: 20130521
  25. NEORAL [Suspect]
     Active Substance: CYCLOSPORINE
     Dosage: 100 MG, UNK
     Route: 065
     Dates: start: 20080714, end: 20080817
  26. NEORAL [Suspect]
     Active Substance: CYCLOSPORINE
     Dosage: 90 MG, QD
     Route: 048
     Dates: start: 20081026, end: 20090104
  27. NEORAL [Suspect]
     Active Substance: CYCLOSPORINE
     Dosage: 105 MG, QD
     Route: 048
     Dates: start: 20090105, end: 20090201
  28. MEVALOTIN [Concomitant]
     Active Substance: PRAVASTATIN SODIUM
     Dosage: 3 MG, UNK
     Route: 048
     Dates: start: 20100201

REACTIONS (8)
  - Gastroenteritis [Recovered/Resolved]
  - Diarrhoea [Unknown]
  - Blood urea increased [Unknown]
  - Hypertension [Recovering/Resolving]
  - Hyperlipidaemia [Not Recovered/Not Resolved]
  - Aspartate aminotransferase increased [Unknown]
  - Dehydration [Unknown]
  - Blood alkaline phosphatase increased [Unknown]

NARRATIVE: CASE EVENT DATE: 20080521
